FAERS Safety Report 4426849-7 (Version None)
Quarter: 2004Q3

REPORT INFORMATION
  Report Type: 
  Country: None (occurrence: None)
  Receive Date: 20040816
  Receipt Date: 20040114
  Transmission Date: 20050211
  Serious: Yes (Hospitalization, Other)
  Sender: FDA-Public Use
  Company Number: PHNU2004DE00530

PATIENT
  Age: 20 Year
  Sex: Female

DRUGS (2)
  1. SANDIMMUNE [Suspect]
     Indication: AUTOIMMUNE DISORDER
     Dosage: 100 MG, BID
     Route: 048
     Dates: start: 19990101
  2. ENOXAPARIN SODIUM [Concomitant]
     Indication: AUTOIMMUNE DISORDER
     Dosage: 40 MG, QD
     Route: 058
     Dates: start: 20040521

REACTIONS (4)
  - CAESAREAN SECTION [None]
  - DRUG EXPOSURE DURING PREGNANCY [None]
  - FOETAL GROWTH RETARDATION [None]
  - NORMAL NEWBORN [None]
